FAERS Safety Report 5832280-X (Version None)
Quarter: 2008Q3

REPORT INFORMATION
  Report Type: 
  Country: None (occurrence: None)
  Receive Date: 20080731
  Receipt Date: 20080731
  Transmission Date: 20090109
  Serious: Yes (Life-Threatening, Hospitalization)
  Sender: FDA-Public Use
  Company Number: None

PATIENT
  Sex: Female
  Weight: 127.9144 kg

DRUGS (4)
  1. FOSINOPRIL SODIUM [Suspect]
     Indication: HYPERTENSION
     Dosage: 5MG DAILY PO
     Route: 048
     Dates: start: 20051020, end: 20071114
  2. ALBUTEROL [Concomitant]
  3. MONTELUKAST SODIUM [Concomitant]
  4. CLARINEX-D [Concomitant]

REACTIONS (4)
  - DYSKINESIA [None]
  - LARYNGEAL OEDEMA [None]
  - RESPIRATORY DISTRESS [None]
  - SWOLLEN TONGUE [None]
